FAERS Safety Report 17898982 (Version 1)
Quarter: 2020Q2

REPORT INFORMATION
  Report Type: Spontaneous
  Country: US (occurrence: US)
  Receive Date: 20200615
  Receipt Date: 20200615
  Transmission Date: 20200714
  Serious: No
  Sender: FDA-Public Use
  Company Number: US-TEVA-2020-US-1247067

PATIENT
  Age: 68 Year
  Sex: Female
  Weight: 95.34 kg

DRUGS (5)
  1. COPAXONE [Suspect]
     Active Substance: GLATIRAMER ACETATE
     Route: 065
     Dates: start: 20200604
  2. OLMESARTAN [Concomitant]
     Active Substance: OLMESARTAN
  3. COPAXONE [Suspect]
     Active Substance: GLATIRAMER ACETATE
     Indication: MULTIPLE SCLEROSIS
     Dosage: TAKING COPAXONE FOR 10-15 YEARS
     Route: 065
  4. ATORVASTATIN [Concomitant]
     Active Substance: ATORVASTATIN
     Route: 065
  5. METOPROLOL. [Concomitant]
     Active Substance: METOPROLOL
     Route: 065

REACTIONS (10)
  - Dyspnoea [Unknown]
  - Speech disorder [Unknown]
  - Muscle spasticity [Unknown]
  - Therapeutic response unexpected [Unknown]
  - Adverse drug reaction [Unknown]
  - Injection site rash [Unknown]
  - Heart rate increased [Not Recovered/Not Resolved]
  - Fatigue [Not Recovered/Not Resolved]
  - Injection site discolouration [Unknown]
  - Dizziness [Unknown]

NARRATIVE: CASE EVENT DATE: 20200604
